FAERS Safety Report 16647822 (Version 4)
Quarter: 2020Q1

REPORT INFORMATION
  Report Type: Report from Study
  Country: US (occurrence: US)
  Receive Date: 20190730
  Receipt Date: 20200108
  Transmission Date: 20200409
  Serious: Yes (Other)
  Sender: FDA-Public Use
  Company Number: US-EISAI MEDICAL RESEARCH-EC-2019-058883

PATIENT
  Age: 75 Year
  Sex: Male
  Weight: 83 kg

DRUGS (22)
  1. LOSARTAN. [Concomitant]
     Active Substance: LOSARTAN
  2. SYNTHROID [Concomitant]
     Active Substance: LEVOTHYROXINE SODIUM
  3. EZETIMIBE. [Concomitant]
     Active Substance: EZETIMIBE
  4. HYDROCORTISONE ACETATE. [Concomitant]
     Active Substance: HYDROCORTISONE ACETATE
  5. DIAZEPAM. [Concomitant]
     Active Substance: DIAZEPAM
  6. TRAMADOL. [Concomitant]
     Active Substance: TRAMADOL
  7. LENVIMA [Suspect]
     Active Substance: LENVATINIB
     Indication: THYROID CANCER
     Route: 048
     Dates: start: 20190703, end: 201907
  8. WARFARIN [Concomitant]
     Active Substance: WARFARIN
  9. LIDOCAINE-PROLOCAINE [Concomitant]
  10. PROCHLORPERAZINE MALEA [Concomitant]
  11. AZELASTINE. [Concomitant]
     Active Substance: AZELASTINE HYDROCHLORIDE
  12. DRONABINOL. [Concomitant]
     Active Substance: DRONABINOL
  13. CARVEDILOL. [Concomitant]
     Active Substance: CARVEDILOL
  14. FAMOTIDINE. [Concomitant]
     Active Substance: FAMOTIDINE
  15. ONDANSETRON [Concomitant]
     Active Substance: ONDANSETRON
  16. VITAMIN D2 [Concomitant]
     Active Substance: ERGOCALCIFEROL
  17. AMOXICILLIN. [Concomitant]
     Active Substance: AMOXICILLIN
  18. LENVIMA [Suspect]
     Active Substance: LENVATINIB
     Route: 048
     Dates: start: 2019, end: 20190806
  19. NEXAVAR [Suspect]
     Active Substance: SORAFENIB
     Indication: PRODUCT USED FOR UNKNOWN INDICATION
     Dosage: DOSE UNKNOWN
     Route: 065
     Dates: start: 201909
  20. PRAVASTATIN. [Concomitant]
     Active Substance: PRAVASTATIN
  21. CLOTRIMAZOLE-BETAMETHA [Concomitant]
  22. FLUTICASONE. [Concomitant]
     Active Substance: FLUTICASONE

REACTIONS (16)
  - Palmar-plantar erythrodysaesthesia syndrome [Unknown]
  - Fall [Recovered/Resolved]
  - Vision blurred [Unknown]
  - Rash [Unknown]
  - Blood pressure increased [Recovering/Resolving]
  - Weight decreased [Unknown]
  - Speech disorder [Unknown]
  - Platelet count decreased [Not Recovered/Not Resolved]
  - Hyperhidrosis [Unknown]
  - White blood cell count decreased [Unknown]
  - Erythema [Unknown]
  - Balance disorder [Recovered/Resolved]
  - Cerebrovascular accident [Recovering/Resolving]
  - Asthenia [Unknown]
  - Headache [Unknown]
  - Flatulence [Unknown]

NARRATIVE: CASE EVENT DATE: 2019
